FAERS Safety Report 4795788-4 (Version None)
Quarter: 2005Q3

REPORT INFORMATION
  Report Type: 
  Country: None (occurrence: None)
  Receive Date: 20050916
  Receipt Date: 20040826
  Transmission Date: 20060218
  Serious: Yes (Other)
  Sender: FDA-Public Use
  Company Number: US-JNJFOC-20040606016

PATIENT
  Age: 40 Year
  Sex: Female
  Weight: 86.1834 kg

DRUGS (6)
  1. TOPAMAX [Suspect]
     Indication: DRUG THERAPY
     Dosage: 50 MG, IN 1 DAY, ORAL; 25 MG, IN 1 DAY, ORAL
     Route: 048
     Dates: start: 20040609, end: 20040615
  2. TOPAMAX [Suspect]
     Indication: PROPHYLAXIS
     Dosage: 50 MG, IN 1 DAY, ORAL; 25 MG, IN 1 DAY, ORAL
     Route: 048
     Dates: start: 20040609, end: 20040615
  3. TOPAMAX [Suspect]
     Indication: DRUG THERAPY
     Dosage: 50 MG, IN 1 DAY, ORAL; 25 MG, IN 1 DAY, ORAL
     Route: 048
     Dates: start: 20040616, end: 20040618
  4. TOPAMAX [Suspect]
     Indication: PROPHYLAXIS
     Dosage: 50 MG, IN 1 DAY, ORAL; 25 MG, IN 1 DAY, ORAL
     Route: 048
     Dates: start: 20040616, end: 20040618
  5. KLONOPIN [Concomitant]
  6. PAXIL CR [Concomitant]

REACTIONS (4)
  - ANGLE CLOSURE GLAUCOMA [None]
  - DRUG HYPERSENSITIVITY [None]
  - HYPOAESTHESIA [None]
  - MYOPIA [None]
